FAERS Safety Report 6695458-1 (Version None)
Quarter: 2010Q2

REPORT INFORMATION
  Report Type: 
  Country: None (occurrence: None)
  Receive Date: 20100422
  Receipt Date: 20100422
  Transmission Date: 20101027
  Serious: Yes (Life-Threatening)
  Sender: FDA-Public Use
  Company Number: None

PATIENT
  Age: 25 Year
  Sex: Female

DRUGS (1)
  1. 2 DAY DIET [Suspect]
     Indication: WEIGHT DECREASED
     Dates: start: 20091101, end: 20091130

REACTIONS (6)
  - LEFT VENTRICULAR HYPERTROPHY [None]
  - MYOCARDITIS [None]
  - PIGMENTATION DISORDER [None]
  - SELF-MEDICATION [None]
  - TACHYCARDIA [None]
  - WEIGHT DECREASED [None]
